FAERS Safety Report 7797065-6 (Version None)
Quarter: 2011Q4

REPORT INFORMATION
  Report Type: 
  Country: None (occurrence: None)
  Receive Date: 20111005
  Receipt Date: 20110929
  Transmission Date: 20120403
  Serious: Yes (Death)
  Sender: FDA-Public Use
  Company Number: US-SANOFI-AVENTIS-2011SA064195

PATIENT
  Age: 71 Year
  Sex: Male

DRUGS (3)
  1. JEVTANA KIT [Suspect]
     Route: 041
     Dates: start: 20110125, end: 20110125
  2. HORMONES AND RELATED AGENTS [Concomitant]
     Indication: PROSTATE CANCER
     Dates: end: 20110101
  3. JEVTANA KIT [Suspect]
     Indication: PROSTATE CANCER
     Route: 041
     Dates: start: 20110104, end: 20110104

REACTIONS (1)
  - DEATH [None]
